FAERS Safety Report 11840283 (Version 1)
Quarter: 2015Q4

REPORT INFORMATION
  Report Type: Spontaneous
  Country: US (occurrence: US)
  Receive Date: 20151216
  Receipt Date: 20151216
  Transmission Date: 20160305
  Serious: Yes (Hospitalization, Other)
  Sender: FDA-Public Use
  Company Number: US-AMGEN-USASP2015073235

PATIENT
  Age: 58 Year
  Sex: Male

DRUGS (10)
  1. PROCRIT [Suspect]
     Active Substance: ERYTHROPOIETIN
     Indication: PRODUCT USED FOR UNKNOWN INDICATION
     Dosage: 10000 UNIT, UNK
     Route: 058
  2. PEPCID                             /00305201/ [Concomitant]
     Active Substance: ALUMINUM HYDROXIDE\MAGNESIUM CARBONATE
     Dosage: 20 MG, UNK
     Route: 042
     Dates: start: 20150529
  3. SUPLENA [Concomitant]
     Dosage: UNK
  4. INSULIN RAPID [Concomitant]
     Active Substance: INSULIN NOS
     Dosage: 10 UNIT, UNK
     Route: 042
  5. HYDRALAZINE [Concomitant]
     Active Substance: HYDRALAZINE HYDROCHLORIDE
     Dosage: UNK
  6. LASIX [Concomitant]
     Active Substance: FUROSEMIDE
     Dosage: 80 MG, UNK
     Route: 042
     Dates: start: 20150529
  7. CEFEPIME [Concomitant]
     Active Substance: CEFEPIME HYDROCHLORIDE
     Dosage: 2 G, DAILY
     Route: 042
     Dates: start: 20150529
  8. SYNTHROID [Concomitant]
     Active Substance: LEVOTHYROXINE SODIUM
     Dosage: 25 MG, UNK
     Route: 048
  9. ADVAIR HFA [Concomitant]
     Active Substance: FLUTICASONE PROPIONATE\SALMETEROL XINAFOATE
     Dosage: UNK UNK, PRN
  10. DXT [Concomitant]
     Dosage: UNK, IN 1HR
     Dates: start: 20150529

REACTIONS (30)
  - Ventricular hypokinesia [Unknown]
  - Acute coronary syndrome [Unknown]
  - Aggression [Unknown]
  - Cardiac failure congestive [Unknown]
  - Oral candidiasis [Unknown]
  - Respiratory failure [Unknown]
  - General physical health deterioration [Unknown]
  - Pain [Unknown]
  - Constipation [Unknown]
  - Sleep disorder [Unknown]
  - Injury [Unknown]
  - Atrial fibrillation [Unknown]
  - Hypertension [Unknown]
  - Self injurious behaviour [Unknown]
  - Transfusion [Unknown]
  - Cerebellar infarction [Unknown]
  - Pneumonia [Unknown]
  - Asthenia [Unknown]
  - Metabolic acidosis [Unknown]
  - Chronic obstructive pulmonary disease [Unknown]
  - Tricuspid valve incompetence [Unknown]
  - Renal failure [Unknown]
  - Left ventricular dysfunction [Unknown]
  - Disorientation [Unknown]
  - Heart rate irregular [Unknown]
  - Chest pain [Unknown]
  - Diabetes mellitus [Unknown]
  - Mitral valve incompetence [Unknown]
  - Acute myocardial infarction [Unknown]
  - Visual impairment [Unknown]
